FAERS Safety Report 8321056-X (Version None)
Quarter: 2012Q2

REPORT INFORMATION
  Report Type: 
  Country: None (occurrence: None)
  Receive Date: 20120430
  Receipt Date: 20120426
  Transmission Date: 20120825
  Serious: Yes (Life-Threatening, Other)
  Sender: FDA-Public Use
  Company Number: PHHY2012BR036271

PATIENT
  Sex: Female
  Weight: 45 kg

DRUGS (6)
  1. FORMOTEROL FUMARATE [Suspect]
     Indication: CHRONIC OBSTRUCTIVE PULMONARY DISEASE
     Dosage: OF 1 INHALATION AT 5 AM AND 1 INHALATION AT 4 PM
  2. TRANQUILIZER [Concomitant]
  3. FERROUS CARBONATE [Concomitant]
     Indication: UNDERWEIGHT
  4. LOSARTAN POTASSIUM AND HYDROCHLOROTHIAZIDE [Concomitant]
     Indication: HYPERTENSION
     Dosage: 1 DF, UNK
     Route: 048
  5. AEROTAPS [Concomitant]
  6. SPIRIVA [Concomitant]
     Indication: CHRONIC OBSTRUCTIVE PULMONARY DISEASE
     Dosage: 2 DF, UNK

REACTIONS (5)
  - DIABETES MELLITUS [None]
  - WRONG DEVICE USED [None]
  - DYSPNOEA [None]
  - APPARENT DEATH [None]
  - MEDICAL DEVICE COMPLICATION [None]
